FAERS Safety Report 4372928-2 (Version None)
Quarter: 2004Q2

REPORT INFORMATION
  Report Type: 
  Country: None (occurrence: None)
  Receive Date: 20040603
  Receipt Date: 20040602
  Transmission Date: 20050107
  Serious: Yes (Hospitalization)
  Sender: FDA-Public Use
  Company Number: 2004-116380-NL

PATIENT
  Age: 76 Year
  Sex: Female

DRUGS (9)
  1. MIRTAZAPINE [Suspect]
     Indication: DYSTHYMIC DISORDER
     Dosage: 30 MG  ORAL
     Route: 048
     Dates: start: 20030401, end: 20040417
  2. MIRTAZAPINE [Suspect]
     Indication: NEUROSIS
     Dosage: 30 MG  ORAL
     Route: 048
     Dates: start: 20030401, end: 20040417
  3. BETAHISTINE HYDROCHLORIDE [Suspect]
     Indication: DIZZINESS
     Dosage: 24 MG, ORAL
     Route: 048
     Dates: start: 20030101, end: 20040417
  4. BETAHISTINE HYDROCHLORIDE [Suspect]
     Indication: VESTIBULAR DISORDER
     Dosage: 24 MG, ORAL
     Route: 048
     Dates: start: 20030101, end: 20040417
  5. ZOLPIDEM [Suspect]
     Indication: SLEEP DISORDER
     Dosage: 10 MG, ORAL
     Route: 048
     Dates: start: 20030101, end: 20040417
  6. GLYCERYL TRINITRATE [Concomitant]
  7. SPIRONOLACTONE [Concomitant]
  8. ACETYLSALICYLATE LYSINE [Concomitant]
  9. BROMAZEPAM [Concomitant]

REACTIONS (3)
  - ANAEMIA [None]
  - HEPATIC NECROSIS [None]
  - THROMBOCYTOPENIA [None]
